FAERS Safety Report 9146183 (Version 3)
Quarter: 2013Q2

REPORT INFORMATION
  Report Type: Report from Study
  Country: JP (occurrence: JP)
  Receive Date: 20130307
  Receipt Date: 20130403
  Transmission Date: 20140414
  Serious: Yes (Other)
  Sender: FDA-Public Use
  Company Number: JP-PFIZER INC-2013077786

PATIENT
  Age: 81 Year
  Sex: Male
  Weight: 47 kg

DRUGS (8)
  1. FOSPHENYTOIN SODIUM [Suspect]
     Indication: PROPHYLAXIS
     Dosage: 18 MG/KG, AT 1 MG/KG/MIN, IN 0.9 % PHYSIOLOGICAL SALINE (1:5)
     Dates: start: 20121102
  2. CEFAMEZIN [Concomitant]
     Indication: PROPHYLAXIS
     Dosage: 2G, UNK
     Route: 042
     Dates: start: 20121102
  3. GLYCEREB [Concomitant]
     Indication: BRAIN OEDEMA
     Dosage: 600 ML, UNK
     Route: 042
  4. RAVONAL [Concomitant]
     Indication: ANAESTHESIA
     Dosage: 300 MG, UNK
     Route: 042
     Dates: start: 20121102
  5. ATROPINE SULFATE [Concomitant]
     Indication: ANAESTHESIA
     Dosage: 1 MG, UNK
     Route: 042
     Dates: start: 20121102
  6. VAGOSTIGMIN [Concomitant]
     Indication: ANAESTHESIA
     Dosage: 1.5 MG, UNK
     Route: 042
     Dates: start: 20121102
  7. TEGRETOL [Concomitant]
     Indication: EPILEPSY
     Dosage: 200MG, UNK
     Route: 048
  8. MUSCULAX [Concomitant]
     Indication: ANAESTHESIA
     Dosage: 20 MG, UNK
     Route: 042
     Dates: start: 20121102

REACTIONS (1)
  - Pleural effusion [Recovering/Resolving]
